FAERS Safety Report 15327159 (Version 1)
Quarter: 2018Q3

REPORT INFORMATION
  Report Type: Spontaneous
  Country: US (occurrence: US)
  Receive Date: 20180823
  Receipt Date: 20180823
  Transmission Date: 20181010
  Serious: Yes (Life-Threatening, Disabling, Other)
  Sender: FDA-Public Use
  Company Number: None

PATIENT
  Age: 5 Year
  Sex: Male
  Weight: 19.8 kg

DRUGS (7)
  1. KID^S CANDIDA RELIEF (HOMEOPATHICS) [Suspect]
     Active Substance: HOMEOPATHICS
     Indication: FUNGAL INFECTION
     Dosage: ?          QUANTITY:1 TEASPOON(S);?
     Route: 048
     Dates: start: 20180818, end: 20180818
  2. LEUCOVORIN. [Concomitant]
     Active Substance: LEUCOVORIN
  3. VITAMIN C [Concomitant]
     Active Substance: ASCORBIC ACID
  4. FISH OIL [Concomitant]
     Active Substance: FISH OIL
  5. VITAMIN D [Concomitant]
     Active Substance: CHOLECALCIFEROL
  6. VITAMIN B12 [Concomitant]
     Active Substance: CYANOCOBALAMIN
  7. PROBIOTIC [Concomitant]
     Active Substance: PROBIOTICS NOS

REACTIONS (5)
  - Kidney infection [None]
  - Cystitis [None]
  - Product quality issue [None]
  - Unevaluable event [None]
  - Product use issue [None]

NARRATIVE: CASE EVENT DATE: 20180819
